FAERS Safety Report 8069225-0 (Version None)
Quarter: 2012Q1

REPORT INFORMATION
  Report Type: 
  Country: None (occurrence: None)
  Receive Date: 20120125
  Receipt Date: 20120118
  Transmission Date: 20120608
  Serious: Yes (Hospitalization)
  Sender: FDA-Public Use
  Company Number: IT-BRISTOL-MYERS SQUIBB COMPANY-16357741

PATIENT
  Age: 72 Year
  Sex: Male

DRUGS (4)
  1. ENALAPRIL MALEATE [Concomitant]
  2. COUMADIN [Suspect]
     Indication: PROPHYLAXIS
     Route: 048
     Dates: start: 20110911, end: 20111206
  3. LASIX [Concomitant]
  4. SPIRONOLACTONE [Concomitant]

REACTIONS (4)
  - CEREBRAL HAEMORRHAGE [None]
  - ANAEMIA [None]
  - APHASIA [None]
  - HEMIPARESIS [None]
